FAERS Safety Report 6842686-8 (Version None)
Quarter: 2010Q3

REPORT INFORMATION
  Report Type: 
  Country: None (occurrence: None)
  Receive Date: 20100714
  Receipt Date: 20070802
  Transmission Date: 20110219
  Serious: No
  Sender: FDA-Public Use
  Company Number: US-PFIZER INC-2007065067

PATIENT
  Sex: Female
  Weight: 90.7 kg

DRUGS (8)
  1. CHANTIX [Suspect]
     Indication: SMOKING CESSATION THERAPY
     Dates: start: 20070722, end: 20070731
  2. WELLBUTRIN [Concomitant]
  3. CELEXA [Concomitant]
  4. PROTONIX [Concomitant]
  5. PREMARIN [Concomitant]
  6. ATIVAN [Concomitant]
  7. MOBIC [Concomitant]
  8. VICODIN [Concomitant]

REACTIONS (2)
  - ABDOMINAL DISCOMFORT [None]
  - ABNORMAL DREAMS [None]
